FAERS Safety Report 6737338-9 (Version None)
Quarter: 2010Q2

REPORT INFORMATION
  Report Type: 
  Country: None (occurrence: None)
  Receive Date: 20100524
  Receipt Date: 20100518
  Transmission Date: 20101027
  Serious: Yes (Death, Hospitalization, Other)
  Sender: FDA-Public Use
  Company Number: CA-CELGENEUS-028-50794-10011989

PATIENT
  Sex: Male

DRUGS (5)
  1. VIDAZA [Suspect]
     Route: 058
     Dates: start: 20091229, end: 20100105
  2. VIDAZA [Suspect]
     Route: 058
     Dates: start: 20091130, end: 20091208
  3. VIDAZA [Suspect]
     Route: 058
     Dates: end: 20100126
  4. VALPROIC ACID [Concomitant]
     Indication: DRUG USE FOR UNKNOWN INDICATION
     Route: 065
  5. AVODART [Concomitant]
     Indication: DRUG USE FOR UNKNOWN INDICATION
     Route: 065

REACTIONS (5)
  - CARDIAC FAILURE CONGESTIVE [None]
  - HAEMOGLOBIN DECREASED [None]
  - LEUKOPENIA [None]
  - LIVER FUNCTION TEST ABNORMAL [None]
  - PLATELET COUNT DECREASED [None]
